FAERS Safety Report 10404453 (Version 1)
Quarter: 2014Q2

REPORT INFORMATION
  Report Type: Spontaneous
  Country: US (occurrence: None)
  Receive Date: 20140425
  Receipt Date: 20140425
  Transmission Date: 20141212
  Serious: No
  Sender: FDA-Public Use
  Company Number: 1021534

PATIENT
  Age: 58 Year
  Sex: Male
  Weight: 89.36 kg

DRUGS (1)
  1. ZELBORAF (VEMURAFENIB) [Suspect]
     Indication: METASTATIC MALIGNANT MELANOMA
     Dosage: 1920 MG (960MG, 2 IN 1 D), ORAL
     Route: 048
     Dates: start: 201111, end: 201112

REACTIONS (11)
  - Rash [None]
  - Ocular hyperaemia [None]
  - Alopecia [None]
  - Sunburn [None]
  - Headache [None]
  - Arthralgia [None]
  - Pruritus [None]
  - Alopecia [None]
  - Fatigue [None]
  - Hair colour changes [None]
  - Hair texture abnormal [None]
